FAERS Safety Report 22641850 (Version 1)
Quarter: 2023Q2

REPORT INFORMATION
  Report Type: Spontaneous
  Country: US (occurrence: US)
  Receive Date: 20230626
  Receipt Date: 20230626
  Transmission Date: 20230721
  Serious: Yes (Hospitalization, Other)
  Sender: FDA-Public Use
  Company Number: US-ADMA BIOLOGICS INC.-US-2023ADM000123

PATIENT

DRUGS (1)
  1. HUMAN IMMUNOGLOBULIN G [Suspect]
     Active Substance: HUMAN IMMUNOGLOBULIN G
     Indication: Congenital abnormality prophylaxis
     Dosage: UNK
     Route: 042

REACTIONS (6)
  - Exposure during pregnancy [Unknown]
  - Premature baby [Unknown]
  - Preterm premature rupture of membranes [Unknown]
  - Foetal heart rate deceleration abnormality [Unknown]
  - Oxygen saturation decreased [Unknown]
  - Off label use [Unknown]
